FAERS Safety Report 10450471 (Version 2)
Quarter: 2014Q4

REPORT INFORMATION
  Report Type: Spontaneous
  Country: SE (occurrence: SE)
  Receive Date: 20140912
  Receipt Date: 20141223
  Transmission Date: 20150528
  Serious: Yes (Life-Threatening, Hospitalization)
  Sender: FDA-Public Use
  Company Number: SE-TEVA-507332ISR

PATIENT
  Age: 89 Year
  Sex: Female

DRUGS (6)
  1. LEVAXIN [Concomitant]
     Active Substance: LEVOTHYROXINE SODIUM
  2. DONEPEZIL [Concomitant]
     Active Substance: DONEPEZIL
  3. PANODIL [Suspect]
     Active Substance: ACETAMINOPHEN
     Route: 048
     Dates: start: 20130530, end: 20130530
  4. OXASCAND 5 MG TABLETT [Suspect]
     Active Substance: OXAZEPAM
     Route: 048
     Dates: start: 20130530, end: 20130530
  5. PLENDIL [Concomitant]
     Active Substance: FELODIPINE
  6. MIRTAZAPINE. [Concomitant]
     Active Substance: MIRTAZAPINE

REACTIONS (2)
  - Toxicity to various agents [Recovered/Resolved]
  - Loss of consciousness [Recovered/Resolved]

NARRATIVE: CASE EVENT DATE: 20130531
